FAERS Safety Report 9363288 (Version 1)
Quarter: 2013Q2

REPORT INFORMATION
  Report Type: Spontaneous
  Country: US (occurrence: US)
  Receive Date: 20130624
  Receipt Date: 20130624
  Transmission Date: 20140414
  Serious: No
  Sender: FDA-Public Use
  Company Number: US-BIOGENIDEC-2013BI055713

PATIENT
  Age: 34 Year
  Sex: Female

DRUGS (6)
  1. TYSABRI [Suspect]
     Indication: MULTIPLE SCLEROSIS
     Route: 042
     Dates: start: 20120830
  2. AVONEX [Concomitant]
     Indication: MULTIPLE SCLEROSIS
     Route: 030
     Dates: start: 20120330
  3. AVONEX [Concomitant]
     Indication: MULTIPLE SCLEROSIS
     Route: 030
     Dates: start: 20120406
  4. TYLENOL [Concomitant]
     Indication: HEADACHE
  5. TYLENOL [Concomitant]
     Indication: PYREXIA
  6. TYLENOL [Concomitant]
     Indication: PAIN

REACTIONS (1)
  - Fatigue [Not Recovered/Not Resolved]
